FAERS Safety Report 25029466 (Version 2)
Quarter: 2025Q1

REPORT INFORMATION
  Report Type: Spontaneous
  Country: MY (occurrence: MY)
  Receive Date: 20250303
  Receipt Date: 20250317
  Transmission Date: 20250409
  Serious: Yes (Other)
  Sender: OCTAPHARMA
  Company Number: MY-OCTA-2025000176

PATIENT
  Age: 10 Year
  Sex: Male

DRUGS (4)
  1. NUWIQ [Suspect]
     Active Substance: ANTIHEMOPHILIC FACTOR, HUMAN RECOMBINANT
     Indication: Haemorrhage prophylaxis
     Route: 042
     Dates: start: 20250206, end: 20250209
  2. NUWIQ [Suspect]
     Active Substance: ANTIHEMOPHILIC FACTOR, HUMAN RECOMBINANT
  3. NUWIQ [Suspect]
     Active Substance: ANTIHEMOPHILIC FACTOR, HUMAN RECOMBINANT
  4. TRANEXAMIC ACID [Concomitant]
     Active Substance: TRANEXAMIC ACID

REACTIONS (1)
  - Procedural haemorrhage [Recovered/Resolved]

NARRATIVE: CASE EVENT DATE: 20250206
